FAERS Safety Report 7024789-0 (Version None)
Quarter: 2010Q4

REPORT INFORMATION
  Report Type: 
  Country: None (occurrence: None)
  Receive Date: 20101001
  Receipt Date: 20100922
  Transmission Date: 20110411
  Serious: Yes (Other)
  Sender: FDA-Public Use
  Company Number: JP-JNJFOC-20100907717

PATIENT
  Sex: Female

DRUGS (7)
  1. REMICADE [Suspect]
     Indication: CROHN'S DISEASE
     Dosage: 11TH INFUSION
     Route: 042
  2. REMICADE [Suspect]
     Dosage: 7 INFUSIONS ADMINISTERED ON UNKNOWN DATES
     Route: 042
  3. REMICADE [Suspect]
     Route: 042
  4. REMICADE [Suspect]
     Route: 042
  5. REMICADE [Suspect]
     Route: 042
  6. PREDONINE [Suspect]
     Indication: PRODUCT USED FOR UNKNOWN INDICATION
  7. PENTASA [Suspect]
     Indication: PRODUCT USED FOR UNKNOWN INDICATION

REACTIONS (1)
  - BLADDER CANCER [None]
